FAERS Safety Report 6029314-9 (Version None)
Quarter: 2009Q1

REPORT INFORMATION
  Report Type: 
  Country: None (occurrence: None)
  Receive Date: 20090106
  Receipt Date: 20081231
  Transmission Date: 20090719
  Serious: Yes (Hospitalization, Other)
  Sender: FDA-Public Use
  Company Number: US-ABBOTT-09P-163-0495573-00

PATIENT
  Sex: Female
  Weight: 56.296 kg

DRUGS (12)
  1. HUMIRA [Suspect]
     Indication: RHEUMATOID ARTHRITIS
     Route: 058
     Dates: start: 20040101, end: 20060101
  2. HUMIRA [Suspect]
     Indication: OSTEOARTHRITIS
  3. HUMIRA [Suspect]
     Indication: FIBROMYALGIA
  4. PREDNISONE [Concomitant]
     Indication: RHEUMATOID ARTHRITIS
  5. PREDNISONE [Concomitant]
     Indication: OSTEOARTHRITIS
  6. PREDNISONE [Concomitant]
     Indication: FIBROMYALGIA
  7. AMITRIPTYLINE HCL [Concomitant]
     Indication: DYSKINESIA
     Dosage: UNKNOWN
  8. EVOXAC [Concomitant]
     Indication: SJOGREN'S SYNDROME
  9. LACTOLOSE [Concomitant]
     Indication: CONSTIPATION
  10. NASONEX [Concomitant]
     Indication: RHEUMATOID LUNG
  11. UNKNOWN INHALER [Concomitant]
     Indication: RHEUMATOID LUNG
  12. NEURONTIN [Concomitant]
     Indication: NEUROPATHY PERIPHERAL

REACTIONS (7)
  - FOOT FRACTURE [None]
  - IMMUNE SYSTEM DISORDER [None]
  - MALIGNANT MELANOMA [None]
  - OSTEOMYELITIS CHRONIC [None]
  - SEPSIS [None]
  - SKIN DISCOLOURATION [None]
  - STAPHYLOCOCCAL INFECTION [None]
